FAERS Safety Report 20398983 (Version 2)
Quarter: 2022Q1

REPORT INFORMATION
  Report Type: Spontaneous
  Country: US (occurrence: US)
  Receive Date: 20220131
  Receipt Date: 20220201
  Transmission Date: 20220423
  Serious: No
  Sender: FDA-Public Use
  Company Number: US-ABBVIE-21K-163-3726760-00

PATIENT

DRUGS (2)
  1. HUMIRA [Suspect]
     Active Substance: ADALIMUMAB
     Indication: Product used for unknown indication
     Route: 058
  2. ENBREL [Suspect]
     Active Substance: ETANERCEPT
     Indication: Product used for unknown indication
     Route: 065

REACTIONS (10)
  - Therapeutic product effect decreased [Unknown]
  - Food intolerance [Unknown]
  - Adverse food reaction [Unknown]
  - Scratch [Unknown]
  - Skin fissures [Unknown]
  - Injection site pain [Unknown]
  - Psoriasis [Unknown]
  - Erythema [Unknown]
  - Therapeutic product effect decreased [Unknown]
  - Overdose [Unknown]
